FAERS Safety Report 25342075 (Version 3)
Quarter: 2025Q3

REPORT INFORMATION
  Report Type: Spontaneous
  Country: US (occurrence: US)
  Receive Date: 20250521
  Receipt Date: 20250717
  Transmission Date: 20251020
  Serious: Yes (Hospitalization, Other)
  Sender: BRISTOL-MYERS SQUIBB COMPANY
  Company Number: US-BRISTOL-MYERS SQUIBB COMPANY-2025-072869

PATIENT
  Age: 68 Year
  Sex: Female

DRUGS (1)
  1. REVLIMID [Suspect]
     Active Substance: LENALIDOMIDE
     Indication: Plasma cell myeloma
     Dosage: DAILY/QD
     Route: 048

REACTIONS (6)
  - Colitis [Unknown]
  - Urinary tract infection [Unknown]
  - Heart rate decreased [Unknown]
  - Back disorder [Unknown]
  - Product distribution issue [Unknown]
  - Therapy interrupted [Unknown]
